FAERS Safety Report 21473247 (Version 6)
Quarter: 2024Q2

REPORT INFORMATION
  Report Type: Spontaneous
  Country: US (occurrence: US)
  Receive Date: 20221018
  Receipt Date: 20240425
  Transmission Date: 20240715
  Serious: No
  Sender: FDA-Public Use
  Company Number: US-BIOGEN-2022BI01147969

PATIENT
  Age: 26 Year
  Sex: Male

DRUGS (1)
  1. VUMERITY [Suspect]
     Active Substance: DIROXIMEL FUMARATE
     Indication: Multiple sclerosis
     Dosage: STARTING DOSE
     Route: 050
     Dates: start: 20220809

REACTIONS (4)
  - Prescribed underdose [Unknown]
  - Headache [Not Recovered/Not Resolved]
  - Multiple sclerosis relapse [Unknown]
  - Hot flush [Unknown]

NARRATIVE: CASE EVENT DATE: 20220809
